FAERS Safety Report 7476669-4 (Version None)
Quarter: 2011Q2

REPORT INFORMATION
  Report Type: 
  Country: None (occurrence: None)
  Receive Date: 20110512
  Receipt Date: 20110509
  Transmission Date: 20111010
  Serious: Yes (Other)
  Sender: FDA-Public Use
  Company Number: JP-PFIZER INC-2011090034

PATIENT
  Age: 33 Year
  Sex: Male

DRUGS (5)
  1. ZITHROMAX [Suspect]
     Indication: PHARYNGITIS
     Dosage: 500 MG, 1X/DAY
     Route: 048
     Dates: start: 20110414, end: 20110416
  2. REBAMIPIDE [Suspect]
     Dosage: UNK
     Route: 048
     Dates: start: 20110414
  3. PABRON [Concomitant]
     Route: 048
  4. AMBROXOL HYDROCHLORIDE [Concomitant]
     Dosage: UNK
     Dates: start: 20110414
  5. SALICYLAMIDE [Suspect]
     Dosage: UNK
     Route: 048
     Dates: start: 20110414

REACTIONS (1)
  - RHABDOMYOLYSIS [None]
